FAERS Safety Report 5126643-8 (Version None)
Quarter: 2006Q4

REPORT INFORMATION
  Report Type: 
  Country: None (occurrence: None)
  Receive Date: 20061013
  Receipt Date: 20061002
  Transmission Date: 20070319
  Serious: Yes (Other)
  Sender: FDA-Public Use
  Company Number: DE-JNJFOC-20061000473

PATIENT
  Age: 2 Decade
  Sex: Male
  Weight: 69 kg

DRUGS (1)
  1. TOPAMAX [Suspect]
     Indication: EPILEPSY
     Route: 048

REACTIONS (3)
  - BLOOD BILIRUBIN INCREASED [None]
  - BLOOD CHLORIDE INCREASED [None]
  - METABOLIC ACIDOSIS [None]
